FAERS Safety Report 8984640 (Version 1)
Quarter: 2012Q4

REPORT INFORMATION
  Report Type: 
  Country: US (occurrence: US)
  Receive Date: 20121225
  Receipt Date: 20121225
  Transmission Date: 20130627
  Serious: No
  Sender: FDA-Public Use
  Company Number: US-ASTRAZENECA-2012SE92368

PATIENT
  Age: 81 Year
  Sex: Male
  Weight: 76.2 kg

DRUGS (3)
  1. SYMBICORT [Suspect]
     Indication: ASTHMA
     Dosage: 160/4.5MG, TWO PUFFS  TWO TIMES A DAY
     Route: 055
     Dates: start: 201211
  2. IMDUR [Concomitant]
     Indication: CHEST PAIN
  3. PREDNISONE [Concomitant]
     Indication: CHEST PAIN

REACTIONS (2)
  - Chest pain [Unknown]
  - Coronary artery disease [Unknown]
